FAERS Safety Report 24803664 (Version 4)
Quarter: 2025Q1

REPORT INFORMATION
  Report Type: Report from Study
  Country: US (occurrence: US)
  Receive Date: 20250103
  Receipt Date: 20250325
  Transmission Date: 20250408
  Serious: Yes (Hospitalization, Other)
  Sender: CSL BEHRING
  Company Number: US-BEH-2024182426

PATIENT
  Age: 48 Year
  Sex: Female
  Weight: 58.05 kg

DRUGS (1)
  1. ZEMAIRA [Suspect]
     Active Substance: .ALPHA.1-PROTEINASE INHIBITOR HUMAN
     Indication: Alpha-1 antitrypsin deficiency
     Dosage: PRODUCT STRENGTH: 60, QW
     Route: 042

REACTIONS (5)
  - Cardiac failure congestive [Unknown]
  - Atrial fibrillation [Unknown]
  - Sinus disorder [Unknown]
  - Intra-abdominal fluid collection [Unknown]
  - Product dose omission issue [Unknown]

NARRATIVE: CASE EVENT DATE: 20241218
